FAERS Safety Report 9687756 (Version 1)
Quarter: 2013Q4

REPORT INFORMATION
  Report Type: Spontaneous
  Country: US (occurrence: US)
  Receive Date: 20131114
  Receipt Date: 20131114
  Transmission Date: 20140711
  Serious: No
  Sender: FDA-Public Use
  Company Number: US-PFIZER INC-2013322082

PATIENT
  Age: 64 Year
  Sex: Male

DRUGS (1)
  1. INLYTA [Suspect]
     Indication: COLON CANCER
     Dosage: 5 MG, EVERY 12 HOURS
     Dates: start: 20120801

REACTIONS (3)
  - Blister [Unknown]
  - Pain in extremity [Unknown]
  - Off label use [Unknown]
